FAERS Safety Report 5719432-4 (Version None)
Quarter: 2008Q2

REPORT INFORMATION
  Report Type: 
  Country: None (occurrence: None)
  Receive Date: 20080428
  Receipt Date: 20080414
  Transmission Date: 20081010
  Serious: Yes (Hospitalization, Other)
  Sender: FDA-Public Use
  Company Number: PHHY2008JP01453

PATIENT
  Age: 59 Year
  Sex: Male
  Weight: 73.5 kg

DRUGS (5)
  1. GLEEVEC [Suspect]
     Indication: ACUTE LYMPHOCYTIC LEUKAEMIA
     Dosage: 600 MG, QD
     Route: 048
     Dates: start: 20070701
  2. GLEEVEC [Suspect]
     Dosage: 400 MG, QD
     Route: 048
     Dates: start: 20070101, end: 20071016
  3. DAUNORUBICIN HCL [Concomitant]
     Indication: ACUTE LYMPHOCYTIC LEUKAEMIA
     Dates: start: 20070801
  4. VINDESINE [Concomitant]
     Indication: ACUTE LYMPHOCYTIC LEUKAEMIA
     Dates: start: 20070801
  5. ELSPAR [Concomitant]
     Indication: ACUTE LYMPHOCYTIC LEUKAEMIA
     Dates: start: 20070801

REACTIONS (20)
  - ACUTE RESPIRATORY DISTRESS SYNDROME [None]
  - ANAEMIA MACROCYTIC [None]
  - BLOOD LACTATE DEHYDROGENASE INCREASED [None]
  - BRAIN NATRIURETIC PEPTIDE INCREASED [None]
  - BREATH SOUNDS ABNORMAL [None]
  - C-REACTIVE PROTEIN INCREASED [None]
  - CHEST X-RAY ABNORMAL [None]
  - DYSPNOEA [None]
  - GENERALISED OEDEMA [None]
  - HAEMOGLOBIN DECREASED [None]
  - HEART RATE INCREASED [None]
  - HYPOALBUMINAEMIA [None]
  - HYPOPROTEINAEMIA [None]
  - INFLAMMATION [None]
  - MECHANICAL VENTILATION [None]
  - OEDEMA PERIPHERAL [None]
  - OXYGEN SATURATION DECREASED [None]
  - PNEUMOCYSTIS JIROVECI PNEUMONIA [None]
  - PYREXIA [None]
  - WEIGHT INCREASED [None]
